FAERS Safety Report 8966266 (Version 1)
Quarter: 2012Q4

REPORT INFORMATION
  Report Type: Report from Study
  Country: ES (occurrence: ES)
  Receive Date: 20121214
  Receipt Date: 20121214
  Transmission Date: 20130627
  Serious: Yes (Other)
  Sender: FDA-Public Use
  Company Number: ES-GENZYME-MOZO-1000795

PATIENT

DRUGS (5)
  1. MOZOBIL [Suspect]
     Indication: ACUTE MYELOID LEUKAEMIA RECURRENT
     Dosage: UNK
     Route: 065
  2. FLUDARA [Suspect]
     Indication: ACUTE MYELOID LEUKAEMIA RECURRENT
     Dosage: UNK
     Route: 065
  3. IDARUBICIN [Suspect]
     Indication: ACUTE MYELOID LEUKAEMIA RECURRENT
     Dosage: UNK
     Route: 065
  4. CYTARABINE [Suspect]
     Indication: ACUTE MYELOID LEUKAEMIA RECURRENT
     Dosage: UNK
     Route: 065
  5. G-CSF [Suspect]
     Indication: ACUTE MYELOID LEUKAEMIA RECURRENT
     Dosage: UNK
     Route: 065

REACTIONS (1)
  - Neutrophil count decreased [Unknown]
